FAERS Safety Report 8814941 (Version 2)
Quarter: 2015Q2

REPORT INFORMATION
  Report Type: Report from Study
  Country: US (occurrence: US)
  Receive Date: 20120928
  Receipt Date: 20150408
  Transmission Date: 20150821
  Serious: Yes (Death, Other)
  Sender: FDA-Public Use
  Company Number: US-ROCHE-1129548

PATIENT
  Sex: Female

DRUGS (20)
  1. SANDOSTATIN [Concomitant]
     Active Substance: OCTREOTIDE ACETATE
  2. MINOCYCLINE [Concomitant]
     Active Substance: MINOCYCLINE\MINOCYCLINE HYDROCHLORIDE
  3. BENADRYL [Concomitant]
     Active Substance: DIPHENHYDRAMINE HYDROCHLORIDE
     Route: 065
  4. ABRAXANE [Concomitant]
     Active Substance: PACLITAXEL
  5. LEUCOVORIN [Concomitant]
     Active Substance: LEUCOVORIN
  6. AVASTIN [Suspect]
     Active Substance: BEVACIZUMAB
     Indication: APPENDIX CANCER
     Route: 042
     Dates: start: 200505
  7. OXALIPLATIN. [Concomitant]
     Active Substance: OXALIPLATIN
  8. ERBITUX [Concomitant]
     Active Substance: CETUXIMAB
     Route: 065
  9. RESINOL [Concomitant]
     Active Substance: PETROLATUM\RESORCINOL
  10. HERCEPTIN [Suspect]
     Active Substance: TRASTUZUMAB
     Indication: GENITAL NEOPLASM MALIGNANT FEMALE
     Dosage: LOADING DOSE (MG) 532.000;MAINT DOSE (MG) 400.000
     Route: 065
  11. COUMADIN [Concomitant]
     Active Substance: WARFARIN SODIUM
     Route: 048
  12. PHENERGAN [Concomitant]
     Active Substance: PROMETHAZINE HYDROCHLORIDE
     Route: 065
  13. ATIVAN [Concomitant]
     Active Substance: LORAZEPAM
     Route: 065
  14. 5-FLUOROURACIL [Concomitant]
     Active Substance: FLUOROURACIL
  15. CAMPTOSAR [Concomitant]
     Active Substance: IRINOTECAN HYDROCHLORIDE
  16. SENOKOT [Concomitant]
     Active Substance: SENNOSIDES
  17. CLEOCIN LOTION [Concomitant]
  18. DURAGESIC [Concomitant]
     Active Substance: FENTANYL
     Indication: PAIN
     Route: 065
  19. DILAUDID [Concomitant]
     Active Substance: HYDROMORPHONE HYDROCHLORIDE
     Route: 065
  20. DECADRON [Concomitant]
     Active Substance: DEXAMETHASONE
     Route: 065

REACTIONS (19)
  - Small intestinal obstruction [Unknown]
  - Deep vein thrombosis [Unknown]
  - Gastric disorder [Unknown]
  - Diarrhoea [Unknown]
  - Gastric ulcer [Unknown]
  - Disease progression [Unknown]
  - Constipation [Unknown]
  - Off label use [Unknown]
  - Abdominal pain [Unknown]
  - Fall [Unknown]
  - Death [Fatal]
  - Eating disorder [Unknown]
  - Dizziness [Unknown]
  - Sepsis [Unknown]
  - Nausea [Unknown]
  - Dermatitis acneiform [Unknown]
  - Infection [Unknown]
  - Migraine [Unknown]
  - Retching [Unknown]
